FAERS Safety Report 15016023 (Version 6)
Quarter: 2018Q3

REPORT INFORMATION
  Report Type: Spontaneous
  Country: BE (occurrence: BE)
  Receive Date: 20180615
  Receipt Date: 20180816
  Transmission Date: 20181010
  Serious: Yes (Life-Threatening, Other)
  Sender: FDA-Public Use
  Company Number: PHHY2016BE067864

PATIENT
  Age: 57 Year
  Sex: Female

DRUGS (22)
  1. REMICADE [Concomitant]
     Active Substance: INFLIXIMAB
     Indication: PRODUCT USED FOR UNKNOWN INDICATION
     Route: 065
  2. SIMULECT [Suspect]
     Active Substance: BASILIXIMAB
     Indication: RENAL TRANSPLANT
     Dosage: 20 MG, UNK
     Route: 065
  3. TAZOCIN [Suspect]
     Active Substance: PIPERACILLIN SODIUM\TAZOBACTAM SODIUM
     Indication: INFECTION PROPHYLAXIS
     Dosage: 12 G, QD (3 DOSES OF 4G/DAY)
     Route: 065
  4. METHYLPREDNISOL SODIUM SUCCINATE [Suspect]
     Active Substance: METHYLPREDNISOLONE SODIUM SUCCINATE
     Indication: IMMUNOSUPPRESSION
     Dosage: 20 MG, BID
     Route: 065
  5. TOBRAMYCINE [Concomitant]
     Active Substance: TOBRAMYCIN SULFATE
     Indication: THERAPEUTIC PROCEDURE
     Route: 065
  6. BACTRIM [Suspect]
     Active Substance: SULFAMETHOXAZOLE\TRIMETHOPRIM
     Indication: INFECTION PROPHYLAXIS
     Dosage: 80 MG, QOD
     Route: 065
  7. DIPEPTIVEN [Concomitant]
     Active Substance: ALANYL GLUTAMINE
     Indication: PRODUCT USED FOR UNKNOWN INDICATION
     Route: 042
  8. SIMULECT [Suspect]
     Active Substance: BASILIXIMAB
     Indication: IMMUNOSUPPRESSANT DRUG THERAPY
  9. DIFLUCAN [Suspect]
     Active Substance: FLUCONAZOLE
     Indication: INFECTION PROPHYLAXIS
     Dosage: 6 MG, QD (2 DOSES OF 3 MG/DAY )
     Route: 065
  10. TACROLIMUS. [Suspect]
     Active Substance: TACROLIMUS
     Indication: RENAL TRANSPLANT
     Route: 065
  11. TACROLIMUS. [Suspect]
     Active Substance: TACROLIMUS
     Indication: INTESTINAL TRANSPLANT
  12. COLISTIN [Concomitant]
     Active Substance: COLISTIN
     Indication: THERAPEUTIC PROCEDURE
     Dosage: UNK (2 X 10^6 UNITS, UNKNOWN FREQ.)
     Route: 065
  13. TACROLIMUS. [Suspect]
     Active Substance: TACROLIMUS
     Indication: IMMUNOSUPPRESSANT DRUG THERAPY
  14. IMURAN [Suspect]
     Active Substance: AZATHIOPRINE
     Indication: RENAL TRANSPLANT
     Dosage: 1 MG/KG, QD (0.5?1MG/KG/DAY)
     Route: 065
  15. IMURAN [Suspect]
     Active Substance: AZATHIOPRINE
     Indication: INTESTINAL TRANSPLANT
  16. IMURAN [Suspect]
     Active Substance: AZATHIOPRINE
     Indication: IMMUNOSUPPRESSANT DRUG THERAPY
  17. IVEGAM CMV [Suspect]
     Active Substance: HUMAN CYTOMEGALOVIRUS IMMUNE GLOBULIN
     Indication: INFECTION PROPHYLAXIS
     Dosage: 1 ML/KG, UNK
     Route: 065
  18. NYSTATINE [Concomitant]
     Indication: THERAPEUTIC PROCEDURE
     Dosage: 5 ML, UNK
     Route: 065
  19. ALITRAQ [Concomitant]
     Indication: PRODUCT USED FOR UNKNOWN INDICATION
     Dosage: 76 G, ONCE DAILY (ENTERALLY)
     Route: 050
  20. AMBISOME [Suspect]
     Active Substance: AMPHOTERICIN B
     Indication: INFECTION PROPHYLAXIS
     Dosage: 3 MG/KG, QD
     Route: 065
  21. CYMEVENE [Suspect]
     Active Substance: GANCICLOVIR
     Indication: INFECTION PROPHYLAXIS
     Dosage: 10 MG/KG, QD (2 DOSES OF 5 MG/KG PER DAY)
     Route: 065
  22. METHYLPREDNISOL SODIUM SUCCINATE [Suspect]
     Active Substance: METHYLPREDNISOLONE SODIUM SUCCINATE
     Dosage: 40 MG, UNK
     Route: 065

REACTIONS (3)
  - Off label use [Unknown]
  - Candida infection [Recovered/Resolved]
  - Drug ineffective [Unknown]
